FAERS Safety Report 8803827 (Version 1)
Quarter: 2012Q4

REPORT INFORMATION
  Report Type: 
  Country: JP (occurrence: JP)
  Receive Date: 20120923
  Receipt Date: 20120923
  Transmission Date: 20130627
  Serious: Yes (Life-Threatening, Hospitalization, Other)
  Sender: FDA-Public Use
  Company Number: PHHY2012JP080854

PATIENT
  Age: 78 Year
  Sex: Female

DRUGS (20)
  1. LAMISIL [Suspect]
     Dosage: 125 mg, QD
     Route: 048
     Dates: end: 20050824
  2. ARICEPT [Suspect]
     Dosage: 5 mg, QD
     Route: 048
     Dates: end: 20050824
  3. RHEUMATREX [Suspect]
     Indication: RHEUMATOID ARTHRITIS
     Dosage: 6 mg, QW
     Dates: end: 20021226
  4. RHEUMATREX [Suspect]
     Dosage: 1 mg, QW
     Route: 048
     Dates: start: 20021227, end: 2005
  5. RHEUMATREX [Suspect]
     Dosage: 2 mg, QW
     Route: 048
     Dates: start: 2005, end: 20050824
  6. ALFACALCIDOL [Suspect]
     Dosage: 0.5 ug, QD
     Route: 048
     Dates: end: 20050824
  7. BETAMETHASONE [Suspect]
     Route: 048
     Dates: end: 20050824
  8. BLOPRESS [Suspect]
     Dosage: 8 mg, daily
     Route: 048
     Dates: end: 20050824
  9. DEPAS [Suspect]
     Dosage: 0.5 mg, QD
     Route: 048
     Dates: end: 20050824
  10. DOGMATYL [Suspect]
     Dosage: 50 mg, QD
     Route: 048
     Dates: end: 20050824
  11. DOMPERIDONE [Suspect]
     Dosage: 30 mg, QD
     Route: 048
     Dates: end: 20050824
  12. BERAPROST [Suspect]
     Dosage: 20 ug, QD
     Route: 048
     Dates: end: 20050824
  13. ESTRIOL [Suspect]
     Dosage: 1 mg, QD
     Route: 048
     Dates: end: 20050824
  14. GASMOTIN [Suspect]
     Dosage: 5 mg, QD
     Route: 048
     Dates: end: 20050824
  15. LASIX [Suspect]
     Dosage: 20 mg, QD
     Route: 048
     Dates: end: 20050824
  16. VITAMIN B12 [Suspect]
     Dosage: 1.5 mg, QD
     Route: 048
     Dates: end: 20050824
  17. MOBIC [Suspect]
     Dosage: 10 mg, QD
     Route: 048
     Dates: end: 20050824
  18. OLOPATADINE [Suspect]
     Dosage: 5 mg, QD
     Route: 048
     Dates: end: 20050824
  19. PRIMOBOLAN [Suspect]
     Dosage: 5 mg, QD
     Route: 048
     Dates: end: 20050824
  20. TAKEPRON [Suspect]
     Dosage: 15 mg, QD
     Route: 048
     Dates: end: 20050824

REACTIONS (10)
  - Coma [Recovered/Resolved]
  - Renal impairment [Recovered/Resolved]
  - Hyperammonaemia [Recovered/Resolved]
  - Pancytopenia [Recovered/Resolved]
  - Hepatic function abnormal [Recovered/Resolved]
  - Dementia [Recovered/Resolved]
  - Abnormal behaviour [Recovered/Resolved]
  - Gastrointestinal haemorrhage [Recovered/Resolved]
  - Toxic skin eruption [Recovered/Resolved]
  - Rash [Recovered/Resolved]
